FAERS Safety Report 10592224 (Version 1)
Quarter: 2014Q4

REPORT INFORMATION
  Report Type: Spontaneous
  Country: US (occurrence: US)
  Receive Date: 20141119
  Receipt Date: 20141119
  Transmission Date: 20150529
  Serious: No
  Sender: FDA-Public Use
  Company Number: US-BIOGENIDEC-2014BI119124

PATIENT
  Age: 28 Year
  Sex: Female

DRUGS (1)
  1. TECFIDERA [Suspect]
     Active Substance: DIMETHYL FUMARATE
     Indication: RELAPSING-REMITTING MULTIPLE SCLEROSIS
     Dates: start: 201409

REACTIONS (5)
  - Nausea [Unknown]
  - Flushing [Unknown]
  - Middle insomnia [Unknown]
  - Salivary hypersecretion [Unknown]
  - Vomiting [Unknown]

NARRATIVE: CASE EVENT DATE: 20141104
